FAERS Safety Report 6380290-9 (Version None)
Quarter: 2009Q3

REPORT INFORMATION
  Report Type: 
  Country: None (occurrence: None)
  Receive Date: 20090929
  Receipt Date: 20090917
  Transmission Date: 20100115
  Serious: Yes (Other)
  Sender: FDA-Public Use
  Company Number: US-AVENTIS-200918466US

PATIENT
  Sex: Female
  Weight: 83.64 kg

DRUGS (12)
  1. LANTUS [Suspect]
  2. NEXIUM [Concomitant]
     Dosage: DOSE: UNK
  3. LASIX [Concomitant]
     Dosage: DOSE: UNK
  4. K-DUR [Concomitant]
     Dosage: DOSE: UNK
  5. LISINOPRIL [Concomitant]
     Dosage: DOSE: UNK
  6. LOPRESOR                           /00376902/ [Concomitant]
     Dosage: DOSE: UNK
  7. OXYCODONE HCL [Concomitant]
     Indication: ABDOMINAL PAIN
  8. BOTOX [Concomitant]
     Dosage: DOSE: UNK
  9. XANAX [Concomitant]
     Indication: ANXIETY
     Dosage: DOSE: UNK
  10. NOVOLOG [Concomitant]
     Dosage: DOSE: SLIDING SCALE; FREQUENCY: BEFORE MEALS AND AT BEDTIME
  11. NOVOLOG [Concomitant]
     Dosage: DOSE: SLIDING SCALE; FREQUENCY: BEFORE MEALS AND AT BEDTIME
  12. APIDRA [Concomitant]
     Dosage: DOSE: UNK

REACTIONS (6)
  - BLINDNESS [None]
  - BLOOD GLUCOSE DECREASED [None]
  - BLOOD GLUCOSE INCREASED [None]
  - DIABETES MELLITUS INADEQUATE CONTROL [None]
  - RETINAL DETACHMENT [None]
  - RETINOPATHY [None]
